FAERS Safety Report 5186575-6 (Version None)
Quarter: 2006Q4

REPORT INFORMATION
  Report Type: 
  Country: None (occurrence: None)
  Receive Date: 20061220
  Receipt Date: 20060731
  Transmission Date: 20070319
  Serious: Yes (Hospitalization)
  Sender: FDA-Public Use
  Company Number: US-ALLERGAN-0603250US

PATIENT
  Sex: Female

DRUGS (2)
  1. BOTOX [Suspect]
     Indication: TORTICOLLIS
     Dosage: 100 UNITS, SINGLE
     Route: 030
     Dates: start: 20061108, end: 20061108
  2. BOTOX [Suspect]
     Dosage: 200 UNITS, SINGLE
     Dates: start: 20061120, end: 20061120

REACTIONS (1)
  - MUSCLE SPASMS [None]
